FAERS Safety Report 20308680 (Version 6)
Quarter: 2022Q2

REPORT INFORMATION
  Report Type: Report from Study
  Country: JP (occurrence: JP)
  Receive Date: 20220107
  Receipt Date: 20220624
  Transmission Date: 20220721
  Serious: Yes (Death, Other)
  Sender: FDA-Public Use
  Company Number: JP-JNJJAKJPN-202148560

PATIENT
  Age: 76 Year
  Sex: Male
  Weight: 35 kg

DRUGS (56)
  1. SIRTURO [Suspect]
     Active Substance: BEDAQUILINE FUMARATE
     Indication: Pulmonary tuberculosis
     Route: 048
     Dates: start: 20210521, end: 20210603
  2. SIRTURO [Suspect]
     Active Substance: BEDAQUILINE FUMARATE
     Indication: Pulmonary tuberculosis
     Route: 048
     Dates: start: 20210604, end: 20210606
  3. SIRTURO [Suspect]
     Active Substance: BEDAQUILINE FUMARATE
     Indication: Pulmonary tuberculosis
     Route: 048
     Dates: start: 20210630, end: 20210725
  4. SIRTURO [Suspect]
     Active Substance: BEDAQUILINE FUMARATE
     Indication: Pulmonary tuberculosis
     Route: 048
     Dates: start: 20210823, end: 20211025
  5. SIRTURO [Suspect]
     Active Substance: BEDAQUILINE FUMARATE
     Indication: Pulmonary tuberculosis
     Route: 048
     Dates: start: 20211108
  6. SIRTURO [Suspect]
     Active Substance: BEDAQUILINE FUMARATE
     Indication: Pulmonary tuberculosis
     Route: 048
  7. CYCLOSERINE [Suspect]
     Active Substance: CYCLOSERINE
     Indication: Pulmonary tuberculosis
     Route: 048
     Dates: start: 20210521, end: 20210606
  8. CYCLOSERINE [Suspect]
     Active Substance: CYCLOSERINE
     Route: 048
     Dates: start: 20210630, end: 20210725
  9. CYCLOSERINE [Suspect]
     Active Substance: CYCLOSERINE
     Route: 048
     Dates: start: 20210823, end: 20211025
  10. CYCLOSERINE [Suspect]
     Active Substance: CYCLOSERINE
     Dosage: DOSE UNKNOWN
     Route: 048
     Dates: start: 20211108
  11. LINEZOLID [Suspect]
     Active Substance: LINEZOLID
     Indication: Pulmonary tuberculosis
     Route: 048
     Dates: start: 20210521, end: 20210606
  12. LINEZOLID [Suspect]
     Active Substance: LINEZOLID
     Route: 048
     Dates: start: 20210630, end: 20210725
  13. LINEZOLID [Suspect]
     Active Substance: LINEZOLID
     Route: 048
     Dates: start: 20210823, end: 20211025
  14. LINEZOLID [Suspect]
     Active Substance: LINEZOLID
     Route: 048
     Dates: start: 20211108
  15. CLOFAZIMINE [Suspect]
     Active Substance: CLOFAZIMINE
     Indication: Pulmonary tuberculosis
     Route: 048
     Dates: start: 20210521, end: 20210606
  16. CLOFAZIMINE [Suspect]
     Active Substance: CLOFAZIMINE
     Route: 048
     Dates: start: 20210630, end: 20210725
  17. PYRAZINAMIDE [Suspect]
     Active Substance: PYRAZINAMIDE
     Indication: Pulmonary tuberculosis
     Route: 048
     Dates: start: 20210217, end: 20210509
  18. PYRAZINAMIDE [Suspect]
     Active Substance: PYRAZINAMIDE
     Route: 048
     Dates: start: 20210521, end: 20210606
  19. LEVOFLOXACIN HEMIHYDRATE [Suspect]
     Active Substance: LEVOFLOXACIN
     Indication: Pulmonary tuberculosis
     Route: 065
     Dates: start: 20210217, end: 20210509
  20. LEVOFLOXACIN HEMIHYDRATE [Suspect]
     Active Substance: LEVOFLOXACIN
     Route: 065
     Dates: start: 20210521, end: 20210606
  21. DELAMANID [Suspect]
     Active Substance: DELAMANID
     Indication: Pulmonary tuberculosis
     Route: 048
     Dates: start: 20210521, end: 20210606
  22. DELAMANID [Suspect]
     Active Substance: DELAMANID
     Route: 048
     Dates: start: 20210630, end: 20210725
  23. DELAMANID [Suspect]
     Active Substance: DELAMANID
     Route: 048
     Dates: start: 20210903, end: 20211010
  24. CILASTATIN SODIUM\IMIPENEM [Suspect]
     Active Substance: CILASTATIN SODIUM\IMIPENEM
     Indication: Pulmonary tuberculosis
     Route: 065
     Dates: start: 20211015, end: 20211025
  25. AUGMENTIN [Suspect]
     Active Substance: AMOXICILLIN\CLAVULANATE POTASSIUM
     Indication: Pulmonary tuberculosis
     Route: 048
     Dates: start: 20211015, end: 20211025
  26. MOSAPRIDE CITRATE DIHYDRATE [Concomitant]
     Active Substance: MOSAPRIDE CITRATE DIHYDRATE
     Indication: Chronic gastritis
     Route: 048
     Dates: end: 20210614
  27. MOSAPRIDE CITRATE DIHYDRATE [Concomitant]
     Active Substance: MOSAPRIDE CITRATE DIHYDRATE
     Indication: Nausea
     Route: 048
     Dates: start: 20211028
  28. VONOPRAZAN FUMARATE [Concomitant]
     Active Substance: VONOPRAZAN FUMARATE
     Indication: Nausea
     Dosage: DOSE UNKNOWN
     Route: 048
     Dates: start: 202106
  29. VONOPRAZAN FUMARATE [Concomitant]
     Active Substance: VONOPRAZAN FUMARATE
     Indication: Gastrooesophageal reflux disease
     Route: 048
     Dates: start: 20210611
  30. DOMPERIDONE [Concomitant]
     Active Substance: DOMPERIDONE
     Indication: Nausea
     Dosage: DOSE UNKNOWN
     Route: 065
     Dates: start: 202106
  31. DOMPERIDONE [Concomitant]
     Active Substance: DOMPERIDONE
     Route: 048
     Dates: start: 20210606, end: 20210607
  32. POTASSIUM CHLORIDE [Concomitant]
     Active Substance: POTASSIUM CHLORIDE
     Indication: Torsade de pointes
     Dosage: DOSE UNKNOWN
     Route: 065
     Dates: start: 20210726, end: 20210728
  33. MAGNESIUM SULFATE HEPTAHYDRATE [Concomitant]
     Active Substance: MAGNESIUM SULFATE HEPTAHYDRATE
     Indication: Torsade de pointes
     Route: 065
     Dates: start: 202107
  34. MAGNESIUM SULFATE HEPTAHYDRATE [Concomitant]
     Active Substance: MAGNESIUM SULFATE HEPTAHYDRATE
     Indication: Hypomagnesaemia
     Route: 065
     Dates: start: 20210624, end: 20210627
  35. MAGNESIUM SULFATE HEPTAHYDRATE [Concomitant]
     Active Substance: MAGNESIUM SULFATE HEPTAHYDRATE
     Route: 065
     Dates: start: 20210705, end: 20210708
  36. MAGNESIUM SULFATE HEPTAHYDRATE [Concomitant]
     Active Substance: MAGNESIUM SULFATE HEPTAHYDRATE
     Route: 065
     Dates: start: 20210716, end: 20210721
  37. MAGNESIUM SULFATE HEPTAHYDRATE [Concomitant]
     Active Substance: MAGNESIUM SULFATE HEPTAHYDRATE
     Route: 065
     Dates: start: 20210725, end: 20210730
  38. MAGNESIUM SULFATE HEPTAHYDRATE [Concomitant]
     Active Substance: MAGNESIUM SULFATE HEPTAHYDRATE
     Route: 065
     Dates: start: 20210813, end: 20210818
  39. MAGNESIUM SULFATE HEPTAHYDRATE [Concomitant]
     Active Substance: MAGNESIUM SULFATE HEPTAHYDRATE
     Route: 065
     Dates: start: 20210923, end: 20210929
  40. URSODIOL [Concomitant]
     Active Substance: URSODIOL
     Indication: Hepatic function abnormal
     Route: 048
     Dates: start: 20210527, end: 20210611
  41. GLYCYRON [Concomitant]
     Indication: Hepatic function abnormal
     Route: 048
     Dates: start: 20210527, end: 20210603
  42. GLYCYRON [Concomitant]
     Route: 048
     Dates: start: 20210604, end: 20210610
  43. MIYA-BM [Concomitant]
     Active Substance: CLOSTRIDIUM BUTYRICUM SPORES STRAIN M-55
     Indication: Constipation
     Route: 048
  44. SENNOSIDES [Concomitant]
     Active Substance: SENNOSIDES
     Indication: Constipation
     Route: 048
     Dates: end: 20210607
  45. LANSOPRAZOLE [Concomitant]
     Active Substance: LANSOPRAZOLE
     Indication: Gastrooesophageal reflux disease
     Route: 048
     Dates: end: 20210607
  46. CARBOCYSTEINE [Concomitant]
     Active Substance: CARBOCYSTEINE
     Indication: Chronic obstructive pulmonary disease
     Route: 048
     Dates: end: 20210607
  47. ALFACALCIDOL [Concomitant]
     Active Substance: ALFACALCIDOL
     Indication: Osteoporosis
     Route: 048
     Dates: end: 20210607
  48. BROTIZOLAM [Concomitant]
     Active Substance: BROTIZOLAM
     Indication: Insomnia
     Route: 048
     Dates: end: 20210524
  49. ETIZOLAM [Concomitant]
     Active Substance: ETIZOLAM
     Indication: Depression
     Route: 048
     Dates: end: 20210524
  50. DAYVIGO [Concomitant]
     Active Substance: LEMBOREXANT
     Indication: Insomnia
     Route: 048
     Dates: start: 20210525, end: 20210607
  51. HERBALS [Concomitant]
     Active Substance: HERBALS
     Indication: Decreased appetite
     Route: 048
     Dates: end: 20210607
  52. FEBUXOSTAT [Concomitant]
     Active Substance: FEBUXOSTAT
     Indication: Hyperuricaemia
     Route: 048
     Dates: start: 20210603, end: 20210607
  53. SODIUM FERROUS CITRATE [Concomitant]
     Active Substance: SODIUM FERROUS CITRATE
     Indication: Iron deficiency anaemia
     Route: 048
     Dates: start: 20210729, end: 20211018
  54. OMEPRAZOLE [Concomitant]
     Active Substance: OMEPRAZOLE
     Indication: Gastrooesophageal reflux disease
     Route: 065
     Dates: start: 20210607, end: 20210610
  55. DOMPERIDONE [Concomitant]
     Active Substance: DOMPERIDONE
     Indication: Nausea
     Route: 048
     Dates: start: 20210606, end: 20210607
  56. AMOXICILLIN\CLAVULANATE POTASSIUM [Concomitant]
     Active Substance: AMOXICILLIN\CLAVULANATE POTASSIUM
     Indication: Pulmonary tuberculosis
     Dosage: DOSE UNKNOWN
     Route: 048
     Dates: start: 20211015, end: 20211025

REACTIONS (9)
  - Asthenia [Fatal]
  - Torsade de pointes [Recovered/Resolved]
  - Electrocardiogram QT prolonged [Recovered/Resolved]
  - Nausea [Recovered/Resolved]
  - Hepatic function abnormal [Recovered/Resolved]
  - Hyperuricaemia [Recovered/Resolved]
  - Malaise [Recovered/Resolved]
  - Nausea [Recovered/Resolved]
  - Vomiting [Recovered/Resolved]

NARRATIVE: CASE EVENT DATE: 20210527
